FAERS Safety Report 10047584 (Version 1)
Quarter: 2014Q1

REPORT INFORMATION
  Report Type: Spontaneous
  Country: IT (occurrence: IT)
  Receive Date: 20140331
  Receipt Date: 20140331
  Transmission Date: 20141002
  Serious: Yes (Life-Threatening)
  Sender: FDA-Public Use
  Company Number: IT-PFIZER INC-2014089589

PATIENT
  Age: 54 Year
  Sex: Female

DRUGS (2)
  1. SERTRALINE HCL [Suspect]
     Indication: DEPRESSION
     Dosage: 500 MG, SINGLE
     Route: 048
     Dates: start: 20140321
  2. AKINETON [Suspect]
     Dosage: 40 MG, DAILY
     Route: 048
     Dates: start: 20140321

REACTIONS (1)
  - Drug abuse [Recovered/Resolved]
